FAERS Safety Report 9966606 (Version 2)
Quarter: 2014Q1

REPORT INFORMATION
  Report Type: Report from Study
  Country: US (occurrence: US)
  Receive Date: 20140305
  Receipt Date: 20140305
  Transmission Date: 20141002
  Serious: Yes (Hospitalization, Other)
  Sender: FDA-Public Use
  Company Number: US-ABBVIE-13P-163-1113025-00

PATIENT
  Age: 60 Year
  Sex: Female
  Weight: 83.08 kg

DRUGS (12)
  1. HUMIRA [Suspect]
     Indication: PSORIATIC ARTHROPATHY
  2. HUMIRA [Suspect]
     Indication: PSORIASIS
     Dates: start: 2011, end: 201306
  3. HUMIRA [Suspect]
  4. MELOXICAM [Concomitant]
     Indication: PSORIATIC ARTHROPATHY
     Dosage: 15 MG 1 TAB DAILY
  5. TRAMADOL [Concomitant]
     Indication: PAIN
     Dosage: 50 MG 1 TAB
  6. ASPIRIN [Concomitant]
     Indication: PROPHYLAXIS
  7. CALCIUM 600 + D [Concomitant]
     Indication: MINERAL SUPPLEMENTATION
     Dosage: 2 TABS DAILY
  8. MULTIVITAMIN [Concomitant]
     Indication: VITAMIN SUPPLEMENTATION
     Dosage: 1 TAB DAILY
  9. VITAMIN D3 [Concomitant]
     Indication: VITAMIN SUPPLEMENTATION
  10. ZOLPIDEM [Concomitant]
     Indication: INSOMNIA
     Dosage: 10 MG 1 TAB
  11. AMLODIPINE [Concomitant]
     Indication: HYPERTENSION
     Dosage: 5 MG 1 TAB DAILY
  12. STOOL SOFTENER FROM SAM^S (NAME/DOSE UNKNOWN) [Concomitant]
     Dosage: DAILY

REACTIONS (12)
  - Psoriatic arthropathy [Recovered/Resolved]
  - Arthralgia [Recovered/Resolved]
  - Lower respiratory tract infection [Recovered/Resolved]
  - Cough [Recovered/Resolved]
  - Wheezing [Recovered/Resolved]
  - Psoriasis [Not Recovered/Not Resolved]
  - Musculoskeletal stiffness [Not Recovered/Not Resolved]
  - Herpes virus infection [Not Recovered/Not Resolved]
  - Psoriasis [Recovered/Resolved]
  - Dyspnoea [Unknown]
  - Chest pain [Unknown]
  - Lung disorder [Unknown]
